FAERS Safety Report 4944805-7 (Version None)
Quarter: 2006Q1

REPORT INFORMATION
  Report Type: 
  Country: None (occurrence: None)
  Receive Date: 20060118
  Receipt Date: 20050714
  Transmission Date: 20060701
  Serious: Yes (Other)
  Sender: FDA-Public Use
  Company Number: US-JNJFOC-20050605903

PATIENT
  Sex: Female

DRUGS (2)
  1. DOXIL [Suspect]
     Indication: UTERINE LEIOMYOSARCOMA
     Dosage: X 5 CYCLES
     Dates: start: 20040101
  2. CISPLATIN [Concomitant]

REACTIONS (2)
  - LEIOMYOSARCOMA [None]
  - MALIGNANT NEOPLASM PROGRESSION [None]
